FAERS Safety Report 8592877-3 (Version None)
Quarter: 2012Q3

REPORT INFORMATION
  Report Type: 
  Country: None (occurrence: None)
  Receive Date: 20120814
  Receipt Date: 20120807
  Transmission Date: 20120928
  Serious: Yes (Other)
  Sender: FDA-Public Use
  Company Number: US-ROCHE-1065825

PATIENT
  Sex: Female
  Weight: 50.394 kg

DRUGS (3)
  1. ACCUTANE [Suspect]
     Route: 065
     Dates: start: 19990105, end: 19990205
  2. ACCUTANE [Suspect]
     Indication: ACNE
     Route: 065
     Dates: start: 19951121, end: 19960510
  3. BIRTH CONTROL (UNK INGREDIENTS) [Concomitant]

REACTIONS (4)
  - DEPRESSION [None]
  - INTESTINAL OBSTRUCTION [None]
  - COLITIS ULCERATIVE [None]
  - INFLAMMATORY BOWEL DISEASE [None]
